FAERS Safety Report 23432638 (Version 1)
Quarter: 2024Q1

REPORT INFORMATION
  Report Type: Spontaneous
  Country: US (occurrence: None)
  Receive Date: 20240123
  Receipt Date: 20240123
  Transmission Date: 20240410
  Serious: Yes (Hospitalization)
  Sender: FDA-Public Use
  Company Number: None

PATIENT
  Age: 41 Year
  Sex: Male
  Weight: 91.17 kg

DRUGS (7)
  1. CYTARABINE [Suspect]
     Active Substance: CYTARABINE
     Dates: end: 20190521
  2. DAUNORUBICIN [Suspect]
     Active Substance: DAUNORUBICIN
     Dates: end: 20190611
  3. DEXAMETHASONE [Suspect]
     Active Substance: DEXAMETHASONE
     Dates: end: 20190610
  4. METHOTREXATE [Suspect]
     Active Substance: METHOTREXATE
     Dates: end: 20190603
  5. PEGASPARGASE [Suspect]
     Active Substance: PEGASPARGASE
     Dates: end: 20190607
  6. RITUXIMAB [Suspect]
     Active Substance: RITUXIMAB
     Dates: end: 20190604
  7. VINCRISTINE SULFATE [Suspect]
     Active Substance: VINCRISTINE SULFATE
     Dates: end: 20190611

REACTIONS (14)
  - Cerebral venous sinus thrombosis [None]
  - Subdural haematoma [None]
  - Nausea [None]
  - Vomiting [None]
  - Headache [None]
  - Photophobia [None]
  - Somnolence [None]
  - Confusional state [None]
  - Myoclonus [None]
  - Pupillary reflex impaired [None]
  - Cough [None]
  - Heart rate increased [None]
  - Intracranial pressure increased [None]
  - Brain oedema [None]

NARRATIVE: CASE EVENT DATE: 20190630
